FAERS Safety Report 16760389 (Version 1)
Quarter: 2019Q3

REPORT INFORMATION
  Report Type: Spontaneous
  Country: US (occurrence: US)
  Receive Date: 20190830
  Receipt Date: 20190830
  Transmission Date: 20191005
  Serious: No
  Sender: FDA-Public Use
  Company Number: US-INCYTE CORPORATION-2019IN008607

PATIENT

DRUGS (1)
  1. JAKAFI [Suspect]
     Active Substance: RUXOLITINIB
     Indication: POLYCYTHAEMIA VERA
     Dosage: 10 MILLIGRAM, BID
     Route: 048
     Dates: start: 20190805

REACTIONS (5)
  - Vomiting [Recovered/Resolved]
  - Product dose omission [Unknown]
  - Malaise [Unknown]
  - Emotional disorder [Unknown]
  - Diarrhoea [Recovered/Resolved]
